FAERS Safety Report 4436462-3 (Version None)
Quarter: 2004Q3

REPORT INFORMATION
  Report Type: 
  Country: None (occurrence: None)
  Receive Date: 20040830
  Receipt Date: 20040519
  Transmission Date: 20050211
  Serious: No
  Sender: FDA-Public Use
  Company Number: US-BRISTOL-MYERS SQUIBB COMPANY-12591939

PATIENT
  Age: 47 Year
  Sex: Female

DRUGS (3)
  1. ABILIFY [Suspect]
     Indication: PSYCHOTIC DISORDER
     Dosage: INITIATED AT 15 MG/DAY, INCREASED TO 20 MG/DAY (DATE UNKNOWN)
     Route: 048
     Dates: start: 20030219
  2. ZOLOFT [Concomitant]
  3. CLONAZEPAM [Concomitant]

REACTIONS (1)
  - PIGMENTATION DISORDER [None]
